FAERS Safety Report 4723889-5 (Version None)
Quarter: 2005Q3

REPORT INFORMATION
  Report Type: 
  Country: None (occurrence: None)
  Receive Date: 20050721
  Receipt Date: 20050709
  Transmission Date: 20060218
  Serious: Yes (Hospitalization)
  Sender: FDA-Public Use
  Company Number: 2005098758

PATIENT
  Age: 38 Year
  Sex: Male
  Weight: 60.3284 kg

DRUGS (3)
  1. ZYVOX [Suspect]
     Indication: LOCALISED INFECTION
     Dosage: INTRAVENOUS
     Route: 042
     Dates: start: 20050629, end: 20050701
  2. ZYVOX [Suspect]
     Indication: LOCALISED INFECTION
     Dosage: INTRAVENOUS
     Route: 042
     Dates: start: 20050301
  3. ZYVOX [Suspect]
     Indication: LOCALISED INFECTION
     Dosage: ORAL
     Route: 048
     Dates: start: 20050708

REACTIONS (2)
  - BONE INFECTION [None]
  - DISEASE RECURRENCE [None]
